FAERS Safety Report 21528955 (Version 1)
Quarter: 2022Q4

REPORT INFORMATION
  Report Type: Spontaneous
  Country: EG (occurrence: EG)
  Receive Date: 20221031
  Receipt Date: 20221031
  Transmission Date: 20230113
  Serious: Yes (Other)
  Sender: FDA-Public Use
  Company Number: EG-Hikma Pharmaceuticals-EG-H14001-22-02802

PATIENT
  Age: 55 Year
  Sex: Male

DRUGS (4)
  1. FLUOROURACIL [Suspect]
     Active Substance: FLUOROURACIL
     Indication: Signet-ring cell carcinoma
     Route: 041
     Dates: start: 20180822
  2. LEUCOVORIN CALCIUM [Suspect]
     Active Substance: LEUCOVORIN CALCIUM
     Indication: Signet-ring cell carcinoma
     Route: 065
     Dates: start: 20180822
  3. OXALIPLATIN [Suspect]
     Active Substance: OXALIPLATIN
     Indication: Signet-ring cell carcinoma
     Route: 041
     Dates: start: 20180822
  4. TAXOTERE [Suspect]
     Active Substance: DOCETAXEL
     Indication: Signet-ring cell carcinoma
     Route: 065
     Dates: start: 20180822

REACTIONS (3)
  - Cardiotoxicity [Unknown]
  - Myocardial ischaemia [Unknown]
  - Arrhythmia [Unknown]

NARRATIVE: CASE EVENT DATE: 20180822
